FAERS Safety Report 26110033 (Version 3)
Quarter: 2025Q4

REPORT INFORMATION
  Report Type: Spontaneous
  Country: RU (occurrence: RU)
  Receive Date: 20251201
  Receipt Date: 20251226
  Transmission Date: 20260117
  Serious: Yes (Life-Threatening, Other)
  Sender: NOVARTIS
  Company Number: RU-002147023-NVSC2025RU182780

PATIENT

DRUGS (3)
  1. RIBOCICLIB [Suspect]
     Active Substance: RIBOCICLIB
     Indication: Breast cancer stage I
     Dosage: 600 MG, PER DAY ON DAYS 1-21,  WITH A 7- DAY BREAK
     Route: 048
     Dates: start: 202109, end: 202308
  2. RIBOCICLIB [Suspect]
     Active Substance: RIBOCICLIB
     Indication: Metastases to ovary
  3. ANASTROZOLE [Concomitant]
     Active Substance: ANASTROZOLE
     Indication: Product used for unknown indication
     Dosage: 1 MG
     Route: 065

REACTIONS (6)
  - PIK3CA-activated mutation [Unknown]
  - Malignant neoplasm progression [Recovered/Resolved]
  - Breast cancer stage I [Recovered/Resolved]
  - Metastases to bone [Recovered/Resolved]
  - Spinal pain [Recovered/Resolved]
  - Osteolysis [Recovered/Resolved]

NARRATIVE: CASE EVENT DATE: 20230601
